FAERS Safety Report 23345936 (Version 2)
Quarter: 2024Q1

REPORT INFORMATION
  Report Type: Other
  Country: US (occurrence: None)
  Receive Date: 20231228
  Receipt Date: 20240102
  Transmission Date: 20240409
  Serious: Yes (Death)
  Sender: FDA-Public Use
  Company Number: US-ROCHE-3482833

PATIENT
  Age: 75 Year
  Sex: Male

DRUGS (1)
  1. AVASTIN [Suspect]
     Active Substance: BEVACIZUMAB
     Indication: Hereditary haemorrhagic telangiectasia
     Dosage: INFUSE 15MG/KG (1155MG) INTRAVENOUSLY EVERY 3 WEEK(S)
     Route: 042

REACTIONS (2)
  - Death [Fatal]
  - Off label use [Unknown]
